FAERS Safety Report 7495300-5 (Version None)
Quarter: 2011Q2

REPORT INFORMATION
  Report Type: 
  Country: None (occurrence: None)
  Receive Date: 20110523
  Receipt Date: 20110513
  Transmission Date: 20111010
  Serious: Yes (Hospitalization)
  Sender: FDA-Public Use
  Company Number: CH-BRISTOL-MYERS SQUIBB COMPANY-15744519

PATIENT
  Age: 47 Year
  Sex: Male

DRUGS (3)
  1. ORENCIA [Suspect]
     Indication: RHEUMATOID ARTHRITIS
     Route: 042
     Dates: start: 20110201
  2. CORTICOSTEROID [Concomitant]
  3. ARAVA [Concomitant]

REACTIONS (5)
  - ANXIETY DISORDER [None]
  - CHEST PAIN [None]
  - DYSPNOEA [None]
  - SENSE OF OPPRESSION [None]
  - DEPRESSION [None]
